FAERS Safety Report 4701627-X (Version None)
Quarter: 2005Q2

REPORT INFORMATION
  Report Type: 
  Country: None (occurrence: None)
  Receive Date: 20050627
  Receipt Date: 20050613
  Transmission Date: 20051028
  Serious: Yes (Other)
  Sender: FDA-Public Use
  Company Number: 2005089085

PATIENT
  Age: 68 Year
  Sex: Male

DRUGS (2)
  1. XALATAN [Suspect]
     Indication: GLAUCOMA
     Dosage: ONE DROP (SINGLE INTERVAL: EVERYDAY) TOPICAL
     Route: 061
     Dates: start: 20010601
  2. COSOPT [Concomitant]

REACTIONS (1)
  - GLAUCOMA SURGERY [None]
